FAERS Safety Report 4972244-1 (Version None)
Quarter: 2006Q2

REPORT INFORMATION
  Report Type: 
  Country: None (occurrence: None)
  Receive Date: 20060413
  Receipt Date: 20060323
  Transmission Date: 20061013
  Serious: Yes (Other)
  Sender: FDA-Public Use
  Company Number: US-ROCHE-441660

PATIENT
  Age: 61 Year
  Sex: Male
  Weight: 80.3 kg

DRUGS (1)
  1. TAMIFLU [Suspect]
     Indication: DRUG USE FOR UNKNOWN INDICATION
     Route: 048

REACTIONS (3)
  - DIARRHOEA [None]
  - GRAND MAL CONVULSION [None]
  - ROAD TRAFFIC ACCIDENT [None]
